FAERS Safety Report 14093280 (Version 2)
Quarter: 2017Q4

REPORT INFORMATION
  Report Type: Spontaneous
  Country: FI (occurrence: FI)
  Receive Date: 20171016
  Receipt Date: 20171220
  Transmission Date: 20180321
  Serious: Yes (Hospitalization, Other)
  Sender: FDA-Public Use
  Company Number: FI-ASTELLAS-2017US040771

PATIENT
  Age: 82 Year
  Sex: Male

DRUGS (3)
  1. BETMIGA [Suspect]
     Active Substance: MIRABEGRON
     Indication: BENIGN PROSTATIC HYPERPLASIA
  2. BETMIGA [Suspect]
     Active Substance: MIRABEGRON
     Indication: NOCTURIA
     Dosage: UNK, UNKNOWN FREQ.
     Route: 065
     Dates: start: 201512
  3. DESMOPRESSIN [Suspect]
     Active Substance: DESMOPRESSIN
     Indication: NOCTURIA
     Dosage: UNK UNK, UNKNOWN FREQ.
     Route: 065

REACTIONS (4)
  - Cerebrovascular accident [Unknown]
  - Off label use [Unknown]
  - Drug ineffective [Unknown]
  - Blood pressure increased [Unknown]
